FAERS Safety Report 9602752 (Version 2)
Quarter: 2013Q4

REPORT INFORMATION
  Report Type: Spontaneous
  Country: US (occurrence: US)
  Receive Date: 20131007
  Receipt Date: 20131007
  Transmission Date: 20140711
  Serious: Yes (Hospitalization, Other)
  Sender: FDA-Public Use
  Company Number: US-VIROPHARMA INCORPORATED-20101102CINRY1673

PATIENT
  Age: 60 Year
  Sex: Male

DRUGS (4)
  1. CINRYZE (C1 ESTERASE INHIBITOR (HUMAN)) [Suspect]
     Indication: HEREDITARY ANGIOEDEMA
  2. CINRYZE (C1 ESTERASE INHIBITOR (HUMAN)) [Suspect]
     Indication: PROPHYLAXIS
     Dates: start: 201009
  3. CINRYZE (C1 ESTERASE INHIBITOR (HUMAN)) [Suspect]
     Indication: OFF LABEL USE
  4. BERINERT [Concomitant]
     Indication: HEREDITARY ANGIOEDEMA
     Dosage: UNKNOWN
     Route: 065

REACTIONS (14)
  - Streptococcal infection [Unknown]
  - Tooth abscess [Unknown]
  - Streptococcal abscess [Unknown]
  - Septic shock [Unknown]
  - Knee operation [Recovered/Resolved]
  - Knee arthroplasty [Recovering/Resolving]
  - Oral cavity fistula [Not Recovered/Not Resolved]
  - Tooth extraction [Recovered/Resolved]
  - Lymphoedema [Not Recovered/Not Resolved]
  - Drug hypersensitivity [Unknown]
  - Hypertension [Unknown]
  - Hereditary angioedema [Unknown]
  - Angioedema [Not Recovered/Not Resolved]
  - Off label use [Unknown]
